FAERS Safety Report 5427277-8 (Version None)
Quarter: 2007Q3

REPORT INFORMATION
  Report Type: 
  Country: None (occurrence: None)
  Receive Date: 20070828
  Receipt Date: 20070824
  Transmission Date: 20080115
  Serious: Yes (Hospitalization)
  Sender: FDA-Public Use
  Company Number: US-BRISTOL-MYERS SQUIBB COMPANY-13889217

PATIENT
  Age: 29 Year
  Sex: Female
  Weight: 63 kg

DRUGS (2)
  1. KENALOG-40 [Suspect]
     Dosage: 1 DOSAGE FORM= 40 MG/ML(2 ML UNDILUTED).
     Dates: start: 20061214, end: 20061214
  2. PRENATAL VITAMINS [Concomitant]

REACTIONS (9)
  - ALOPECIA [None]
  - CONTUSION [None]
  - FEELING COLD [None]
  - GASTROINTESTINAL HAEMORRHAGE [None]
  - INJECTION SITE ATROPHY [None]
  - MOOD ALTERED [None]
  - PAIN [None]
  - RASH PAPULAR [None]
  - SKIN EXFOLIATION [None]
